FAERS Safety Report 5700151-5 (Version None)
Quarter: 2008Q2

REPORT INFORMATION
  Report Type: 
  Country: None (occurrence: None)
  Receive Date: 20080410
  Receipt Date: 20080401
  Transmission Date: 20081010
  Serious: Yes (Other)
  Sender: FDA-Public Use
  Company Number: PHHY2008PE04177

PATIENT
  Age: 72 Year
  Sex: Male

DRUGS (3)
  1. EXFORGE [Suspect]
     Indication: HYPERTENSION
     Dosage: 160/10 MG/DAY
     Dates: start: 20080101
  2. EXFORGE [Suspect]
     Dosage: 80/5 MG/DAY
  3. NIMODIPINE [Concomitant]

REACTIONS (4)
  - INSOMNIA [None]
  - SLEEP DISORDER [None]
  - SOMNAMBULISM [None]
  - VASCULAR DEMENTIA [None]
